FAERS Safety Report 9114649 (Version 1)
Quarter: 2013Q1

REPORT INFORMATION
  Report Type: Spontaneous
  Country: SE (occurrence: None)
  Receive Date: 20130128
  Receipt Date: 20130128
  Transmission Date: 20140127
  Serious: Yes (Hospitalization)
  Sender: FDA-Public Use
  Company Number: DSA_62071_2013

PATIENT
  Age: 83 Year
  Sex: Female
  Weight: 72.4 kg

DRUGS (16)
  1. RENITEC /00574902/ (RENITEC (ENALAPRIL MALEATE)) 20 MG (NOT SPECIFIED) [Suspect]
     Indication: ESSENTIAL HYPERTENSION
     Route: 048
     Dates: start: 20110125, end: 20121104
  2. SPIRONOLACTONE (SPIRONOLACTONE) 12 MG [Suspect]
     Indication: PRODUCT USED FOR UNKNOWN INDICATION
     Dosage: (12 MG  QD  ORAL)?(08/08/2011  TO  NOT CONTINUING)
     Route: 048
     Dates: start: 20110808
  3. TRAMADOL [Concomitant]
  4. BISOPROLOL [Concomitant]
  5. SYMBICORT [Concomitant]
  6. NASONEX [Concomitant]
  7. LEVAXIN [Concomitant]
  8. HIRUDOID /00723702/ [Concomitant]
  9. PANODIL [Concomitant]
  10. TRYPTIZOL /00002202/ [Concomitant]
  11. SOBRIL [Concomitant]
  12. FURIX [Concomitant]
  13. ZIPZOC [Concomitant]
  14. TROMBYL [Concomitant]
  15. MILDISON [Concomitant]
  16. ZOPICLONE [Concomitant]

REACTIONS (2)
  - Hyperkalaemia [None]
  - Weight decreased [None]
